FAERS Safety Report 10957782 (Version 1)
Quarter: 2015Q1

REPORT INFORMATION
  Report Type: Spontaneous
  Country: GB (occurrence: GB)
  Receive Date: 20150326
  Receipt Date: 20150326
  Transmission Date: 20150721
  Serious: Yes (Other)
  Sender: FDA-Public Use
  Company Number: GB-BAXTER-2015BAX015135

PATIENT
  Age: 12 Year
  Sex: Male

DRUGS (10)
  1. KIOVIG [Suspect]
     Active Substance: HUMAN IMMUNOGLOBULIN G
     Indication: OFF LABEL USE
  2. CIDOFOVIR. [Suspect]
     Active Substance: CIDOFOVIR
     Indication: VIRAEMIA
  3. CIDOFOVIR. [Suspect]
     Active Substance: CIDOFOVIR
     Indication: CYTOMEGALOVIRUS INFECTION
  4. CYCLOPHOSPHAMIDE INJECTION 1G [Suspect]
     Active Substance: CYCLOPHOSPHAMIDE
     Indication: T-CELL TYPE ACUTE LEUKAEMIA
     Route: 065
  5. KIOVIG [Suspect]
     Active Substance: HUMAN IMMUNOGLOBULIN G
     Indication: PARVOVIRUS INFECTION
     Route: 042
  6. CIDOFOVIR. [Suspect]
     Active Substance: CIDOFOVIR
     Indication: INFECTION
  7. KIOVIG [Suspect]
     Active Substance: HUMAN IMMUNOGLOBULIN G
     Indication: INFECTION REACTIVATION
  8. CIDOFOVIR. [Suspect]
     Active Substance: CIDOFOVIR
     Indication: ADENOVIRUS INFECTION
     Route: 065
  9. GANCICLOVIR. [Suspect]
     Active Substance: GANCICLOVIR
     Indication: CYTOMEGALOVIRUS INFECTION
     Route: 065
  10. CIDOFOVIR. [Suspect]
     Active Substance: CIDOFOVIR
     Indication: ADENOVIRAL HEPATITIS
     Dosage: STANDARD DOSE
     Route: 065

REACTIONS (10)
  - Cytomegalovirus chorioretinitis [Recovered/Resolved]
  - Adenovirus infection [Recovered/Resolved]
  - Adenoviral hepatitis [Recovered/Resolved]
  - Parvovirus infection [Recovered/Resolved]
  - Infection [Recovered/Resolved]
  - Infection reactivation [Recovered/Resolved]
  - Cytomegalovirus infection [Recovered/Resolved]
  - Graft versus host disease [Recovered/Resolved]
  - Aplasia pure red cell [Recovered/Resolved]
  - Retinal detachment [Recovered/Resolved]
